FAERS Safety Report 8300223-5 (Version None)
Quarter: 2012Q2

REPORT INFORMATION
  Report Type: 
  Country: None (occurrence: None)
  Receive Date: 20120420
  Receipt Date: 20120416
  Transmission Date: 20120825
  Serious: Yes (Other)
  Sender: FDA-Public Use
  Company Number: US-PFIZER INC-2012094716

PATIENT
  Sex: Male
  Weight: 90.703 kg

DRUGS (3)
  1. VIAGRA [Suspect]
     Dosage: 100 MG, 1X/DAY (1 TAB PO QD)
     Route: 048
  2. CIALIS [Concomitant]
     Dosage: 20 MG, 1X/DAY (1 TABLET PO QD PRN)
     Route: 048
  3. ZOVIRAX [Concomitant]
     Dosage: 400 MG, 3X/DAY (1 TABLET PO TID)
     Route: 048

REACTIONS (5)
  - BENIGN PROSTATIC HYPERPLASIA [None]
  - DYSURIA [None]
  - HAEMATURIA [None]
  - HERPES SIMPLEX [None]
  - ERECTILE DYSFUNCTION [None]
